FAERS Safety Report 10057100 (Version 6)
Quarter: 2016Q2

REPORT INFORMATION
  Report Type: Report from Study
  Country: JP (occurrence: JP)
  Receive Date: 20140403
  Receipt Date: 20160505
  Transmission Date: 20160815
  Serious: Yes (Hospitalization)
  Sender: FDA-Public Use
  Company Number: PHHO2011JP01905

PATIENT
  Age: 59 Year
  Sex: Male
  Weight: 58 kg

DRUGS (28)
  1. BAYASPIRIN [Concomitant]
     Active Substance: ASPIRIN
     Indication: THROMBOSIS PROPHYLAXIS
     Dosage: 100 MG, UNK
     Route: 048
     Dates: start: 20070107
  2. PLAVIX [Concomitant]
     Active Substance: CLOPIDOGREL BISULFATE
     Indication: THROMBOSIS PROPHYLAXIS
     Dosage: 75 MG, UNK
     Route: 048
     Dates: start: 20070107
  3. PLAVIX [Concomitant]
     Active Substance: CLOPIDOGREL BISULFATE
     Dosage: UNK
     Route: 048
  4. LASIX [Concomitant]
     Active Substance: FUROSEMIDE
     Dosage: 140 MG, QD
     Route: 048
     Dates: start: 20140428
  5. CRESTOR [Concomitant]
     Active Substance: ROSUVASTATIN CALCIUM
     Indication: HYPERLIPIDAEMIA
     Dosage: 5 MG, UNK
     Route: 048
     Dates: start: 20070107
  6. FLUITRAN [Concomitant]
     Active Substance: TRICHLORMETHIAZIDE
     Indication: CARDIAC FAILURE CHRONIC
     Dosage: 2 MG, UNK
     Route: 048
     Dates: start: 20080918, end: 20130717
  7. CRESTOR [Concomitant]
     Active Substance: ROSUVASTATIN CALCIUM
     Dosage: 2.5 MG, QD
     Route: 048
     Dates: start: 20130717
  8. LASIX [Concomitant]
     Active Substance: FUROSEMIDE
     Dosage: 80 MG, QD
     Route: 048
     Dates: start: 20140115, end: 20140311
  9. AMARYL [Concomitant]
     Active Substance: GLIMEPIRIDE
     Indication: DIABETES MELLITUS
     Dosage: 1 MG, UNK
     Route: 048
     Dates: start: 20070130, end: 20130717
  10. EPLERENONE. [Concomitant]
     Active Substance: EPLERENONE
     Indication: CARDIAC FAILURE CHRONIC
     Dosage: 100 MG, UNK
     Route: 048
     Dates: start: 20100121
  11. SIGMART [Concomitant]
     Active Substance: NICORANDIL
     Indication: ANGINA PECTORIS
     Dosage: 10 MG, UNK
     Route: 048
     Dates: start: 20070129, end: 20130515
  12. RENIVACE [Concomitant]
     Active Substance: ENALAPRIL
     Indication: CARDIAC FAILURE CHRONIC
     Dosage: 15MG
     Route: 048
     Dates: start: 20131211, end: 20131217
  13. ENALAPRIL [Suspect]
     Active Substance: ENALAPRIL
     Indication: CARDIAC FAILURE
     Dosage: 5 MG, BID
     Route: 048
     Dates: start: 20100714
  14. ENALAPRIL [Suspect]
     Active Substance: ENALAPRIL
     Indication: CARDIAC FAILURE CHRONIC
     Dosage: 5 MG, BID
     Route: 048
     Dates: start: 20110715, end: 20130911
  15. LASIX [Concomitant]
     Active Substance: FUROSEMIDE
     Dosage: 100 MG, QD
     Route: 048
     Dates: start: 20140312, end: 20140427
  16. WARFARIN [Concomitant]
     Active Substance: WARFARIN
     Indication: THROMBOSIS PROPHYLAXIS
     Dosage: 4 MG, UNK
     Route: 048
     Dates: start: 20101117
  17. LASIX [Concomitant]
     Active Substance: FUROSEMIDE
     Indication: CARDIAC FAILURE CHRONIC
     Dosage: 40 MG, QD
     Route: 048
     Dates: start: 20080515
  18. ARTIST [Concomitant]
     Active Substance: CARVEDILOL
     Dosage: 5 MG, QD
     Route: 048
     Dates: start: 20140430
  19. TAKEPRON [Concomitant]
     Active Substance: LANSOPRAZOLE
     Indication: GASTRITIS PROPHYLAXIS
     Dosage: 15 MG, UNK
     Route: 048
     Dates: start: 20070107
  20. WARFARIN [Concomitant]
     Active Substance: WARFARIN
     Dosage: 1.5 MG, QD
     Route: 048
     Dates: start: 20140212
  21. ENALAPRIL MALEATE. [Suspect]
     Active Substance: ENALAPRIL MALEATE
     Indication: CARDIAC FAILURE CHRONIC
     Dosage: 10 MG, QD
     Dates: start: 20130911, end: 20131112
  22. LANIRAPID [Concomitant]
     Active Substance: METILDIGOXIN
     Indication: CARDIAC FAILURE CHRONIC
     Dosage: 0.1 MG, UNK
     Route: 048
     Dates: start: 20070109
  23. ARTIST [Concomitant]
     Active Substance: CARVEDILOL
     Indication: CARDIAC FAILURE CHRONIC
     Dosage: 10 MG, UNK
     Route: 048
     Dates: start: 20080709, end: 20140429
  24. FEBURIC [Concomitant]
     Active Substance: FEBUXOSTAT
     Indication: HYPERURICAEMIA
     Dosage: 10 MG, UNK
     Route: 048
     Dates: start: 20130717
  25. RENIVACE [Concomitant]
     Active Substance: ENALAPRIL
     Dosage: 20 MG, QD
     Route: 048
     Dates: start: 20131218
  26. AMOBANTES [Concomitant]
     Indication: INSOMNIA
     Dosage: 75 MG, UNK
     Route: 048
     Dates: start: 20110223
  27. ENALAPRIL MALEATE. [Suspect]
     Active Substance: ENALAPRIL MALEATE
     Dosage: 15 MG, QD
     Route: 048
     Dates: start: 20131113
  28. SELARA [Concomitant]
     Active Substance: EPLERENONE
     Indication: CARDIAC FAILURE CHRONIC
     Dosage: 10 MG, UNK
     Route: 048
     Dates: start: 20100121

REACTIONS (23)
  - Atrial flutter [Recovered/Resolved]
  - Tricuspid valve incompetence [Recovered/Resolved]
  - Cardiac failure [Recovered/Resolved]
  - Dilatation ventricular [Recovered/Resolved]
  - Left ventricular dysfunction [Recovered/Resolved]
  - Left ventricular hypertrophy [Recovered/Resolved]
  - Hypohidrosis [Recovered/Resolved]
  - Ejection fraction decreased [Recovered/Resolved]
  - Sodium retention [Recovered/Resolved]
  - Mitral valve disease [Recovered/Resolved]
  - Akinesia [Recovered/Resolved]
  - Dyspnoea exertional [Recovered/Resolved]
  - Hypervolaemia [Recovered/Resolved]
  - Ventricular dyskinesia [Recovered/Resolved]
  - Brain natriuretic peptide increased [Recovered/Resolved]
  - Mitral valve incompetence [Recovered/Resolved]
  - Inferior vena cava dilatation [Recovered/Resolved]
  - Blood sodium increased [Recovered/Resolved]
  - Ventricular remodelling [Recovered/Resolved]
  - Cardiac failure [Recovering/Resolving]
  - Ventricular hypokinesia [Recovered/Resolved]
  - Pulmonary arterial hypertension [Recovered/Resolved]
  - Left ventricular end-diastolic pressure increased [Recovered/Resolved]

NARRATIVE: CASE EVENT DATE: 20110113
